FAERS Safety Report 7979530-1 (Version None)
Quarter: 2011Q4

REPORT INFORMATION
  Report Type: 
  Country: None (occurrence: None)
  Receive Date: 20111214
  Receipt Date: 20111129
  Transmission Date: 20120403
  Serious: Yes (Other)
  Sender: FDA-Public Use
  Company Number: PHHY2009CA31663

PATIENT
  Sex: Female

DRUGS (6)
  1. SANDOSTATIN LAR [Suspect]
     Indication: NEUROENDOCRINE TUMOUR
     Dosage: 30 MG EVERY 4 WEEKS
     Route: 030
     Dates: start: 20090721
  2. SANDOSTATIN LAR [Suspect]
     Dosage: 30 MG, EVERY 2 WEEKS
     Route: 030
  3. SANDOSTATIN LAR [Suspect]
     Dosage: 20 MG, BIW
     Route: 030
  4. SANDOSTATIN LAR [Suspect]
     Dosage: 30 MG, EVERY 2 WEEKS
     Route: 030
     Dates: start: 20110920
  5. SANDOSTATIN LAR [Suspect]
     Dosage: 30 MG, OTHER
  6. MORPHINE [Concomitant]
     Dosage: 30 MG, BID

REACTIONS (38)
  - LUNG NEOPLASM [None]
  - ABDOMINAL PAIN [None]
  - HYPERSOMNIA [None]
  - WEIGHT DECREASED [None]
  - BLOOD PRESSURE SYSTOLIC INCREASED [None]
  - DIARRHOEA [None]
  - HOT FLUSH [None]
  - HAEMORRHOIDS [None]
  - BACK PAIN [None]
  - PARAESTHESIA [None]
  - INJECTION SITE MASS [None]
  - NEOPLASM MALIGNANT [None]
  - FATIGUE [None]
  - INSOMNIA [None]
  - ANORECTAL DISCOMFORT [None]
  - ASTHENIA [None]
  - DECREASED APPETITE [None]
  - VISUAL IMPAIRMENT [None]
  - ABDOMINAL PAIN LOWER [None]
  - FAECAL INCONTINENCE [None]
  - SYRINGE ISSUE [None]
  - DYSSTASIA [None]
  - BLOOD PRESSURE DECREASED [None]
  - DIZZINESS [None]
  - PROCTALGIA [None]
  - PAIN IN EXTREMITY [None]
  - HEADACHE [None]
  - FLATULENCE [None]
  - BALANCE DISORDER [None]
  - NAUSEA [None]
  - METASTASES TO LIVER [None]
  - GASTROINTESTINAL NEOPLASM [None]
  - DYSPNOEA EXERTIONAL [None]
  - CHILLS [None]
  - TREMOR [None]
  - INJECTION SITE REACTION [None]
  - INJECTION SITE PAIN [None]
  - FEELING HOT [None]
